FAERS Safety Report 8310857-X (Version None)
Quarter: 2012Q2

REPORT INFORMATION
  Report Type: 
  Country: None (occurrence: None)
  Receive Date: 20120425
  Receipt Date: 19930208
  Transmission Date: 20120825
  Serious: Yes (Death, Hospitalization, Other)
  Sender: FDA-Public Use
  Company Number: FR-ROCHE-22821

PATIENT
  Sex: Female

DRUGS (5)
  1. RAMIPRIL [Concomitant]
  2. OXACILLIN [Concomitant]
     Dates: start: 19920911, end: 19920921
  3. NAPROXEN [Suspect]
     Indication: OSTEOARTHRITIS
     Route: 048
  4. SOTALOL HCL [Concomitant]
     Route: 048
  5. ACETAMINOPHEN [Concomitant]

REACTIONS (4)
  - SEPSIS [None]
  - BONE MARROW FAILURE [None]
  - STAPHYLOCOCCAL SEPSIS [None]
  - FATIGUE [None]
